FAERS Safety Report 7605230-3 (Version None)
Quarter: 2011Q3

REPORT INFORMATION
  Report Type: 
  Country: None (occurrence: None)
  Receive Date: 20110705
  Receipt Date: 20110621
  Transmission Date: 20111222
  Serious: Yes (Other)
  Sender: FDA-Public Use
  Company Number: JHP201100244

PATIENT
  Age: 37 Year
  Sex: Male

DRUGS (4)
  1. DOPAMINE HCL [Concomitant]
  2. NITROGLYCEIN (NITROGLYCEIN) [Concomitant]
  3. EPINEPHRINE [Suspect]
     Dosage: 0.1 UG/KG/MIN
  4. ANESTHETICS [Concomitant]

REACTIONS (2)
  - HEART RATE INCREASED [None]
  - PULSE ABNORMAL [None]
